FAERS Safety Report 20216414 (Version 1)
Quarter: 2021Q4

REPORT INFORMATION
  Report Type: Spontaneous
  Country: US (occurrence: None)
  Receive Date: 20211221
  Receipt Date: 20211221
  Transmission Date: 20220303
  Serious: Yes (Hospitalization, Disabling)
  Sender: FDA-Public Use
  Company Number: None

PATIENT
  Age: 70 Year
  Sex: Female
  Weight: 55.8 kg

DRUGS (4)
  1. FULVESTRANT [Suspect]
     Active Substance: FULVESTRANT
     Indication: Uterine cancer
     Dosage: FREQUENCY : MONTHLY;?
     Route: 030
  2. OXYCODONE [Concomitant]
     Active Substance: OXYCODONE
  3. LORAZEPAM [Concomitant]
     Active Substance: LORAZEPAM
  4. METOPROLOL SUCCINATE [Concomitant]
     Active Substance: METOPROLOL SUCCINATE

REACTIONS (3)
  - Fall [None]
  - Hip fracture [None]
  - Sensory loss [None]

NARRATIVE: CASE EVENT DATE: 20210913
